FAERS Safety Report 14244038 (Version 2)
Quarter: 2017Q4

REPORT INFORMATION
  Report Type: Spontaneous
  Country: US (occurrence: US)
  Receive Date: 20171201
  Receipt Date: 20171206
  Transmission Date: 20180321
  Serious: Yes (Death, Hospitalization, Other)
  Sender: FDA-Public Use
  Company Number: US-ASTELLAS-2017US049785

PATIENT
  Age: 67 Year
  Sex: Male

DRUGS (3)
  1. PREDNISONE. [Suspect]
     Active Substance: PREDNISONE
     Indication: LIVER TRANSPLANT
     Dosage: UNK UNK, UNKNOWN FREQ.
     Route: 065
  2. PREDNISONE. [Suspect]
     Active Substance: PREDNISONE
  3. TACROLIMUS. [Suspect]
     Active Substance: TACROLIMUS
     Indication: LIVER TRANSPLANT
     Dosage: UNK, UNKNOWN FREQ.
     Route: 065

REACTIONS (13)
  - Cytopenia [Unknown]
  - Pancytopenia [Unknown]
  - Septic shock [Unknown]
  - Multiple organ dysfunction syndrome [Fatal]
  - Pneumonia klebsiella [Fatal]
  - Tachypnoea [Unknown]
  - Myelodysplastic syndrome [Unknown]
  - Mental status changes [Unknown]
  - Syncope [Unknown]
  - Trichosporon infection [Recovered/Resolved]
  - Rash erythematous [Unknown]
  - Exfoliative rash [Unknown]
  - Klebsiella bacteraemia [Unknown]
